FAERS Safety Report 10933420 (Version 1)
Quarter: 2015Q1

REPORT INFORMATION
  Report Type: Spontaneous
  Country: US (occurrence: None)
  Receive Date: 20150319
  Receipt Date: 20150319
  Transmission Date: 20150721
  Serious: Yes (Hospitalization)
  Sender: FDA-Public Use
  Company Number: 2015CT000015

PATIENT
  Age: 58 Year
  Sex: Female

DRUGS (2)
  1. SOMATROPIN [Concomitant]
     Active Substance: SOMATROPIN
  2. KORLYM [Suspect]
     Active Substance: MIFEPRISTONE
     Indication: CUSHING^S SYNDROME
     Route: 048
     Dates: start: 20130719

REACTIONS (2)
  - Blood potassium decreased [None]
  - Vein collapse [None]
